FAERS Safety Report 9087063 (Version 1)
Quarter: 2013Q1

REPORT INFORMATION
  Report Type: Spontaneous
  Country: US (occurrence: US)
  Receive Date: 20130131
  Receipt Date: 20130131
  Transmission Date: 20140127
  Serious: Yes (Hospitalization)
  Sender: FDA-Public Use
  Company Number: US-PFIZER INC-2013037196

PATIENT
  Age: 15 Month
  Sex: Male

DRUGS (1)
  1. CHILDRENS ADVIL [Suspect]
     Indication: NASOPHARYNGITIS
     Dosage: UNK, AS NEEDED
     Route: 048
     Dates: start: 2011

REACTIONS (5)
  - Convulsion [Unknown]
  - Nightmare [Unknown]
  - Middle insomnia [Unknown]
  - Eye movement disorder [Unknown]
  - Skin discolouration [Unknown]
